FAERS Safety Report 7900270-9 (Version None)
Quarter: 2011Q4

REPORT INFORMATION
  Report Type: 
  Country: None (occurrence: None)
  Receive Date: 20111108
  Receipt Date: 20111028
  Transmission Date: 20120403
  Serious: Yes (Hospitalization)
  Sender: FDA-Public Use
  Company Number: CA-JNJFOC-20111101651

PATIENT
  Sex: Male
  Weight: 89.9 kg

DRUGS (5)
  1. PENTASA [Concomitant]
     Route: 065
  2. GEMFIBROZIL [Concomitant]
     Route: 065
  3. REMICADE [Suspect]
     Indication: CROHN'S DISEASE
     Dosage: HAD 66 INFUSIONS
     Route: 042
  4. CHOLESTYRAMINE [Concomitant]
     Route: 065
  5. ATENOLOL [Concomitant]
     Route: 065

REACTIONS (2)
  - NASOPHARYNGITIS [None]
  - NASAL OPERATION [None]
